FAERS Safety Report 18412536 (Version 1)
Quarter: 2020Q4

REPORT INFORMATION
  Report Type: Report from Study
  Country: US (occurrence: US)
  Receive Date: 20201021
  Receipt Date: 20201021
  Transmission Date: 20210114
  Serious: No
  Sender: FDA-Public Use
  Company Number: NVSC2020US281066

PATIENT
  Sex: Female
  Weight: 93.7 kg

DRUGS (1)
  1. ILARIS [Suspect]
     Active Substance: CANAKINUMAB
     Indication: PYREXIA
     Dosage: 150 MG, EVERY 8 WEEKS (UNDER THE SKIN)
     Route: 065

REACTIONS (2)
  - Urticaria [Unknown]
  - Rash [Unknown]
